FAERS Safety Report 10045333 (Version 1)
Quarter: 2014Q1

REPORT INFORMATION
  Report Type: Spontaneous
  Country: DE (occurrence: DE)
  Receive Date: 20140328
  Receipt Date: 20140328
  Transmission Date: 20141002
  Serious: Yes (Other)
  Sender: FDA-Public Use
  Company Number: DE-WATSON-2014-06026

PATIENT
  Sex: Female

DRUGS (1)
  1. ELLA (UNKNOWN) [Suspect]
     Indication: UTERINE LEIOMYOMA
     Dosage: UNK, UNKNOWN
     Route: 065

REACTIONS (1)
  - Necrosis [Unknown]
